FAERS Safety Report 9413725 (Version 1)
Quarter: 2013Q3

REPORT INFORMATION
  Report Type: Spontaneous
  Country: US (occurrence: US)
  Receive Date: 20130722
  Receipt Date: 20130722
  Transmission Date: 20140515
  Serious: Yes (Hospitalization)
  Sender: FDA-Public Use
  Company Number: US-AMGEN-USASP2013050164

PATIENT
  Age: 49 Year
  Sex: Male

DRUGS (12)
  1. SENSIPAR [Suspect]
     Indication: HYPERPARATHYROIDISM SECONDARY
     Dosage: 60 MG, QD
  2. ARANESP [Suspect]
     Indication: PRODUCT USED FOR UNKNOWN INDICATION
  3. ASPIRIN [Concomitant]
  4. SIMVASTATIN [Concomitant]
  5. AMIODARONE [Concomitant]
  6. ALBUMIN [Concomitant]
  7. DOXERCALCIFEROL [Concomitant]
  8. FERROUS SULFATE [Concomitant]
  9. FLUDROCORTISONE [Concomitant]
  10. INSULIN [Concomitant]
  11. MIDODRINE [Concomitant]
  12. PREDNISONE [Concomitant]

REACTIONS (1)
  - Myocardial infarction [Recovering/Resolving]
